FAERS Safety Report 9255971 (Version 1)
Quarter: 2013Q2

REPORT INFORMATION
  Report Type: Spontaneous
  Country: US (occurrence: US)
  Receive Date: 20130425
  Receipt Date: 20130425
  Transmission Date: 20140414
  Serious: No
  Sender: FDA-Public Use
  Company Number: US-009507513-1304USA011289

PATIENT
  Sex: Male

DRUGS (8)
  1. VICTRELIS [Suspect]
     Indication: HEPATITIS C
     Dosage: 4 CAPSULES, TID
     Route: 048
     Dates: start: 20130205
  2. PEGASYS [Suspect]
  3. RIBASPHERE [Suspect]
  4. LOSARTAN POTASSIUM [Concomitant]
  5. METFORMIN [Concomitant]
  6. GLYBURIDE [Concomitant]
  7. ASPIRIN [Concomitant]
  8. VITAMINS (UNSPECIFIED) [Concomitant]

REACTIONS (1)
  - Fatigue [Not Recovered/Not Resolved]
